FAERS Safety Report 25953567 (Version 1)
Quarter: 2025Q4

REPORT INFORMATION
  Report Type: Spontaneous
  Country: US (occurrence: None)
  Receive Date: 20251023
  Receipt Date: 20251023
  Transmission Date: 20260118
  Serious: Yes (Other)
  Sender: FDA-CTU
  Company Number: None

PATIENT
  Age: 44 Year
  Sex: Female
  Weight: 75.3 kg

DRUGS (2)
  1. NURTEC ODT [Suspect]
     Active Substance: RIMEGEPANT SULFATE
     Indication: Migraine
     Dosage: 75 MG PRN ORAL ?
     Route: 048
     Dates: start: 20250922
  2. OZEMPIC [Suspect]
     Active Substance: SEMAGLUTIDE

REACTIONS (6)
  - Pain in extremity [None]
  - Musculoskeletal discomfort [None]
  - Musculoskeletal discomfort [None]
  - Musculoskeletal discomfort [None]
  - Drug ineffective [None]
  - Weight decreased [None]

NARRATIVE: CASE EVENT DATE: 20250927
